FAERS Safety Report 7539289-9 (Version None)
Quarter: 2011Q2

REPORT INFORMATION
  Report Type: 
  Country: None (occurrence: None)
  Receive Date: 20110610
  Receipt Date: 20110606
  Transmission Date: 20111010
  Serious: Yes (Hospitalization, Other)
  Sender: FDA-Public Use
  Company Number: US-ELI_LILLY_AND_COMPANY-US200910005206

PATIENT
  Age: 47 Year
  Sex: Male

DRUGS (11)
  1. METFORMIN HYDROCHLORIDE [Concomitant]
     Indication: DIABETES MELLITUS
  2. PLAVIX [Concomitant]
     Dosage: 75 MG, QD
  3. BYETTA [Suspect]
     Dosage: UNK, UNKNOWN
     Dates: end: 20070501
  4. NOVOLOG MIX 70/30 [Concomitant]
     Indication: DIABETES MELLITUS
     Dosage: 65 U, EACH MORNING
  5. LYRICA [Concomitant]
     Dosage: 75 MG, BID
  6. BYETTA [Suspect]
     Dosage: UNK, UNKNOWN
     Route: 065
     Dates: start: 20061026
  7. CARDURA [Concomitant]
     Dosage: 2 MG, QD
  8. TRICOR [Concomitant]
     Dosage: 145 MG, EACH EVENING
  9. BYETTA [Suspect]
     Dosage: 10 UG, BID
     Dates: start: 20070121
  10. NOVOLOG MIX 70/30 [Concomitant]
     Dosage: 45 U, EACH EVENING
  11. ACCUPRIL [Concomitant]
     Dosage: 10 MG, QD

REACTIONS (2)
  - OFF LABEL USE [None]
  - PANCREATITIS ACUTE [None]
